FAERS Safety Report 25990678 (Version 1)
Quarter: 2025Q4

REPORT INFORMATION
  Report Type: Report from Study
  Country: US (occurrence: None)
  Receive Date: 20251103
  Receipt Date: 20251103
  Transmission Date: 20260117
  Serious: Yes (Hospitalization, Other)
  Sender: UCB
  Company Number: US-UCBSA-2025068429

PATIENT

DRUGS (2)
  1. LEVETIRACETAM [Suspect]
     Active Substance: LEVETIRACETAM
     Indication: Prophylaxis
     Dosage: 1 GRAM (BOLUS)
  2. LEVETIRACETAM [Suspect]
     Active Substance: LEVETIRACETAM
     Indication: Off label use

REACTIONS (6)
  - Seizure [Unknown]
  - Intensive care [Unknown]
  - Hospitalisation [Unknown]
  - Nervous system disorder [Unknown]
  - Adverse event [Unknown]
  - Off label use [Unknown]
